FAERS Safety Report 6887668-5 (Version None)
Quarter: 2010Q3

REPORT INFORMATION
  Report Type: 
  Country: None (occurrence: None)
  Receive Date: 20100730
  Receipt Date: 20100719
  Transmission Date: 20110219
  Serious: Yes (Other)
  Sender: FDA-Public Use
  Company Number: US-JNJCH-2010017100

PATIENT
  Age: 56 Year
  Sex: Female

DRUGS (6)
  1. ROLAIDS TAB [Suspect]
     Indication: DYSPEPSIA
     Dosage: TEXT:TWO TO FOUR DAILY
     Route: 048
  2. ROLAIDS TAB [Suspect]
  3. LYRICA [Concomitant]
     Indication: FIBROMYALGIA
     Dosage: TEXT:UNKNOWN
     Route: 065
  4. NEURONTIN [Concomitant]
     Indication: FIBROMYALGIA
     Dosage: TEXT:UNKNOWN
     Route: 065
  5. MORPHIN [Concomitant]
     Indication: NECK INJURY
     Dosage: TEXT:UNKNOWN
     Route: 065
  6. ACETAMINOPHEN AND HYDROCODONE BITARTRATE [Concomitant]
     Indication: PAIN
     Dosage: TEXT:UNKNOWN
     Route: 065

REACTIONS (3)
  - PNEUMONIA [None]
  - PRODUCT QUALITY ISSUE [None]
  - TOOTH DISORDER [None]
